FAERS Safety Report 9010095 (Version 7)
Quarter: 2014Q4

REPORT INFORMATION
  Report Type: Spontaneous
  Country: US (occurrence: US)
  Receive Date: 20130110
  Receipt Date: 20141110
  Transmission Date: 20150529
  Serious: Yes (Hospitalization, Other)
  Sender: FDA-Public Use
  Company Number: US-009507513-1301USA002321

PATIENT
  Sex: Female
  Weight: 78.46 kg

DRUGS (2)
  1. FOSAMAX [Suspect]
     Active Substance: ALENDRONATE SODIUM
     Indication: OSTEOPOROSIS
     Dosage: 70 MG, QW
     Route: 048
     Dates: start: 200308, end: 200903
  2. ALENDRONATE SODIUM. [Suspect]
     Active Substance: ALENDRONATE SODIUM
     Dosage: 70 MG, UNK
     Route: 048

REACTIONS (27)
  - Removal of internal fixation [Unknown]
  - Hyperkeratosis [Unknown]
  - Intramedullary rod insertion [Unknown]
  - Biopsy bone [Unknown]
  - Rheumatoid lung [Unknown]
  - Haemorrhagic anaemia [Unknown]
  - Surgery [Unknown]
  - Back pain [Not Recovered/Not Resolved]
  - Fracture nonunion [Unknown]
  - Pulmonary fibrosis [Unknown]
  - Anaemia [Unknown]
  - Femur fracture [Recovering/Resolving]
  - Knee arthroplasty [Unknown]
  - Ankle deformity [Not Recovered/Not Resolved]
  - Atrial fibrillation [Unknown]
  - Transplant [Unknown]
  - Scoliosis surgery [Unknown]
  - Coronary artery disease [Unknown]
  - Arthralgia [Not Recovered/Not Resolved]
  - Knee arthroplasty [Unknown]
  - Coronary arterial stent insertion [Unknown]
  - Body height decreased [Unknown]
  - Low turnover osteopathy [Unknown]
  - Osteopenia [Unknown]
  - Vaginal lesion [Unknown]
  - Scoliosis [Unknown]
  - Medical device complication [Unknown]

NARRATIVE: CASE EVENT DATE: 2003
